FAERS Safety Report 20087041 (Version 8)
Quarter: 2025Q1

REPORT INFORMATION
  Report Type: Report from Study
  Country: US (occurrence: US)
  Receive Date: 20211118
  Receipt Date: 20250101
  Transmission Date: 20250408
  Serious: Yes (Hospitalization)
  Sender: ROCHE
  Company Number: US-ROCHE-2959436

PATIENT
  Age: 5 Year
  Sex: Female
  Weight: 10.7 kg

DRUGS (6)
  1. EVRYSDI [Suspect]
     Active Substance: RISDIPLAM
     Indication: Spinal muscular atrophy
     Dosage: DAILY AT THE SAME TIME AFTER A MEAL
     Route: 065
  2. SPINRAZA [Concomitant]
     Active Substance: NUSINERSEN
  3. ZOLGENSMA [Concomitant]
     Active Substance: ONASEMNOGENE ABEPARVOVEC-XIOI
  4. CEFTIN [Concomitant]
     Active Substance: CEFUROXIME AXETIL
  5. TYLENOL [Concomitant]
     Active Substance: ACETAMINOPHEN
  6. MOTRIN [Concomitant]
     Active Substance: IBUPROFEN

REACTIONS (7)
  - Pneumonia [Recovered/Resolved]
  - Rhinovirus infection [Recovered/Resolved]
  - COVID-19 [Recovered/Resolved]
  - Enterovirus infection [Recovered/Resolved]
  - Respiratory syncytial virus test positive [Recovered/Resolved]
  - Cough [Unknown]
  - Pyrexia [Unknown]

NARRATIVE: CASE EVENT DATE: 20211112
